FAERS Safety Report 5597211-9 (Version None)
Quarter: 2007Q4

REPORT INFORMATION
  Report Type: 
  Country: None (occurrence: None)
  Receive Date: 20071221
  Receipt Date: 20071011
  Transmission Date: 20080405
  Serious: No
  Sender: FDA-Public Use
  Company Number: US-CVT-070168

PATIENT
  Age: 76 Year
  Sex: Male

DRUGS (7)
  1. RANEXA [Suspect]
     Indication: ANGINA PECTORIS
     Dosage: 500 MG, BID, ORAL
     Route: 048
     Dates: start: 20070920, end: 20071009
  2. HYDROCORTISONE [Concomitant]
  3. TOPRAL (SULTOPRIDE) [Concomitant]
  4. PLAVIX [Concomitant]
  5. PROTONIX /01263201/ (PANTOPRAZOLE) [Concomitant]
  6. CARDURA /00639301/ (DOXAZOSIN) [Concomitant]
  7. COZAAR [Concomitant]

REACTIONS (3)
  - DIPLOPIA [None]
  - HEADACHE [None]
  - VISION BLURRED [None]
